FAERS Safety Report 6343477-7 (Version None)
Quarter: 2009Q3

REPORT INFORMATION
  Report Type: 
  Country: None (occurrence: None)
  Receive Date: 20090904
  Receipt Date: 20090904
  Transmission Date: 20100115
  Serious: No
  Sender: FDA-Public Use
  Company Number: None

PATIENT
  Age: 12 Year
  Sex: Male
  Weight: 68.0396 kg

DRUGS (1)
  1. BUPROPION HCL [Suspect]
     Dosage: 150MG QD ORAL
     Route: 048
     Dates: start: 20090324, end: 20090817

REACTIONS (2)
  - DRUG EFFECT DECREASED [None]
  - PRODUCT SUBSTITUTION ISSUE [None]
